FAERS Safety Report 5399278-X (Version None)
Quarter: 2007Q3

REPORT INFORMATION
  Report Type: 
  Country: None (occurrence: None)
  Receive Date: 20070727
  Receipt Date: 20070719
  Transmission Date: 20080115
  Serious: Yes (Other)
  Sender: FDA-Public Use
  Company Number: B0480590A

PATIENT
  Age: 59 Year
  Sex: Male

DRUGS (5)
  1. AVODART [Suspect]
     Indication: BENIGN PROSTATIC HYPERPLASIA
     Route: 065
     Dates: end: 20070625
  2. LOBIVON [Concomitant]
     Indication: TACHYCARDIA
  3. LOPID [Concomitant]
  4. PRADIF [Concomitant]
  5. PROSCAR [Concomitant]

REACTIONS (3)
  - ALOPECIA [None]
  - FATIGUE [None]
  - MUSCLE ATROPHY [None]
